FAERS Safety Report 15849408 (Version 1)
Quarter: 2019Q1

REPORT INFORMATION
  Report Type: Spontaneous
  Country: US (occurrence: US)
  Receive Date: 20190121
  Receipt Date: 20190121
  Transmission Date: 20190417
  Serious: Yes (Other)
  Sender: FDA-Public Use
  Company Number: US-009507513-1901USA006315

PATIENT
  Age: 61 Year
  Sex: Male
  Weight: 100.7 kg

DRUGS (1)
  1. COZAAR [Suspect]
     Active Substance: LOSARTAN POTASSIUM
     Dosage: UNK
     Route: 048
     Dates: start: 1997

REACTIONS (15)
  - Gastrooesophageal reflux disease [Unknown]
  - Blood pressure fluctuation [Unknown]
  - Throat cancer [Recovered/Resolved]
  - Fractured coccyx [Unknown]
  - Urine flow decreased [Recovered/Resolved]
  - Gout [Unknown]
  - Hypothyroidism [Unknown]
  - Hypertension [Unknown]
  - Vitamin D deficiency [Unknown]
  - Dysuria [Recovered/Resolved]
  - Dysuria [Unknown]
  - Prostatism [Unknown]
  - Hypertension [Unknown]
  - Osteopenia [Unknown]
  - Fall [Unknown]

NARRATIVE: CASE EVENT DATE: 1997
